FAERS Safety Report 8250641-9 (Version None)
Quarter: 2012Q2

REPORT INFORMATION
  Report Type: 
  Country: None (occurrence: None)
  Receive Date: 20120402
  Receipt Date: 20120330
  Transmission Date: 20120825
  Serious: Yes (Other)
  Sender: FDA-Public Use
  Company Number: DE-JNJFOC-20111106400

PATIENT
  Age: 20 Year
  Sex: Male

DRUGS (32)
  1. DOXORUBICIN HCL [Suspect]
     Route: 042
  2. DOXORUBICIN HCL [Suspect]
     Route: 065
  3. DEXAMETHASONE [Suspect]
     Route: 065
  4. DEPOCYT [Suspect]
     Indication: BURKITT'S LYMPHOMA
     Route: 065
  5. DEXAMETHASONE [Suspect]
     Route: 065
  6. CYTARABINE [Suspect]
     Route: 065
  7. DOXORUBICIN HCL [Suspect]
     Indication: BURKITT'S LYMPHOMA
     Route: 042
  8. VINCRISTINE [Suspect]
     Route: 065
  9. METHOTREXATE [Suspect]
     Indication: BURKITT'S LYMPHOMA
     Route: 065
  10. RITUXIMAB [Suspect]
     Indication: BURKITT'S LYMPHOMA
     Dosage: DAY 1
     Route: 065
  11. DOXORUBICIN HCL [Suspect]
     Route: 042
  12. DOXORUBICIN HCL [Suspect]
     Route: 065
  13. CYCLOPHOSPHAMIDE [Suspect]
     Route: 065
  14. METHOTREXATE [Suspect]
     Route: 065
  15. CYTARABINE [Suspect]
     Indication: BURKITT'S LYMPHOMA
     Route: 065
  16. DOXORUBICIN HCL [Suspect]
     Route: 042
  17. DOXORUBICIN HCL [Suspect]
     Route: 065
  18. VINCRISTINE [Suspect]
     Route: 065
  19. METHOTREXATE [Suspect]
     Route: 065
  20. PREDNISONE TAB [Suspect]
     Indication: BURKITT'S LYMPHOMA
     Route: 065
  21. DEXAMETHASONE [Suspect]
     Indication: BURKITT'S LYMPHOMA
     Route: 065
  22. CYTARABINE [Suspect]
     Route: 065
  23. CYCLOPHOSPHAMIDE [Suspect]
     Dosage: A1-A3
     Route: 065
  24. CYCLOPHOSPHAMIDE [Suspect]
     Route: 065
  25. VINCRISTINE [Suspect]
     Indication: BURKITT'S LYMPHOMA
     Route: 065
  26. VINCRISTINE [Suspect]
     Route: 065
  27. DOXORUBICIN HCL [Suspect]
     Route: 065
  28. CYCLOPHOSPHAMIDE [Suspect]
     Indication: BURKITT'S LYMPHOMA
     Route: 065
  29. CYCLOPHOSPHAMIDE [Suspect]
     Route: 065
  30. DEXAMETHASONE [Suspect]
     Route: 065
  31. METHOTREXATE [Suspect]
     Route: 065
  32. CYTARABINE [Suspect]
     Route: 065

REACTIONS (6)
  - HEPATIC ENZYME INCREASED [None]
  - HERPES SIMPLEX [None]
  - PNEUMOCYSTIS JIROVECI PNEUMONIA [None]
  - MUCOSAL INFLAMMATION [None]
  - FEBRILE BONE MARROW APLASIA [None]
  - HYPERKALAEMIA [None]
